FAERS Safety Report 13888992 (Version 1)
Quarter: 2017Q3

REPORT INFORMATION
  Report Type: Spontaneous
  Country: US (occurrence: US)
  Receive Date: 20170816
  Receipt Date: 20170816
  Transmission Date: 20171127
  Serious: No
  Sender: FDA-Public Use
  Company Number: None

PATIENT
  Age: 70 Year
  Sex: Female
  Weight: 81 kg

DRUGS (3)
  1. LORATADINE. [Suspect]
     Active Substance: LORATADINE
  2. KIRKLAND SIGNATURE ALLERCLEAR [Suspect]
     Active Substance: LORATADINE
     Dosage: ?          QUANTITY:1 TABLET(S);?
     Route: 048
  3. CLARITIN [Suspect]
     Active Substance: LORATADINE

REACTIONS (3)
  - Urticaria [None]
  - Pruritus generalised [None]
  - Drug dependence [None]

NARRATIVE: CASE EVENT DATE: 20170814
